FAERS Safety Report 15165491 (Version 2)
Quarter: 2018Q3

REPORT INFORMATION
  Report Type: Spontaneous
  Country: US (occurrence: US)
  Receive Date: 20180719
  Receipt Date: 20180726
  Transmission Date: 20181010
  Serious: Yes (Other)
  Sender: FDA-Public Use
  Company Number: US-PFIZER INC-2018285858

PATIENT
  Age: 10 Year
  Sex: Female

DRUGS (10)
  1. FENTANYL. [Concomitant]
     Active Substance: FENTANYL
     Indication: INDUCTION OF ANAESTHESIA
     Dosage: UNK (MAINTENANCE ANESTHESIA)
  2. VECURONIUM [Concomitant]
     Active Substance: VECURONIUM BROMIDE
     Indication: INDUCTION OF ANAESTHESIA
     Dosage: UNK
  3. ISOFLURANE. [Concomitant]
     Active Substance: ISOFLURANE
     Indication: MAINTENANCE OF ANAESTHESIA
     Dosage: UNK (DECREASED TO 0.4 MAC)
  4. MIDAZOLAM [Concomitant]
     Active Substance: MIDAZOLAM HYDROCHLORIDE
     Indication: INDUCTION OF ANAESTHESIA
     Dosage: UNK
  5. FENTANYL. [Concomitant]
     Active Substance: FENTANYL
     Indication: MAINTENANCE OF ANAESTHESIA
     Dosage: UNK
  6. ISOFLURANE. [Concomitant]
     Active Substance: ISOFLURANE
     Indication: INDUCTION OF ANAESTHESIA
     Dosage: UNK, MAINTENANCE OF ANESTHESIA (THE ISOFLURANE DOSE WAS KEPT STABLE AT 0.6 MAC (MINIMUM ALVEOLAR CON
  7. MAGNESIUM SULFATE. [Suspect]
     Active Substance: MAGNESIUM SULFATE
     Indication: BLOOD PRESSURE FLUCTUATION
     Dosage: 2 G, UNK (ADMINISTERED FOR 3.5 MINUTES)
     Route: 040
  8. LIDOCAINE. [Concomitant]
     Active Substance: LIDOCAINE
     Indication: INDUCTION OF ANAESTHESIA
     Dosage: UNK
  9. PROPOFOL. [Concomitant]
     Active Substance: PROPOFOL
     Indication: INDUCTION OF ANAESTHESIA
     Dosage: UNK, THE PROPOFOL DOSE (MAINTENANCE ANESTHESIA ) WAS KEPT BELOW 120 UG/KG/MIN
  10. PROPOFOL. [Concomitant]
     Active Substance: PROPOFOL
     Indication: MAINTENANCE OF ANAESTHESIA

REACTIONS (2)
  - Product use in unapproved indication [Unknown]
  - Motor dysfunction [Recovered/Resolved]
